FAERS Safety Report 25167908 (Version 1)
Quarter: 2025Q2

REPORT INFORMATION
  Report Type: Spontaneous
  Country: KR (occurrence: KR)
  Receive Date: 20250407
  Receipt Date: 20250407
  Transmission Date: 20250716
  Serious: Yes (Other)
  Sender: ROCHE
  Company Number: KR-ROCHE-10000246202

PATIENT
  Sex: Female

DRUGS (6)
  1. AVASTIN [Suspect]
     Active Substance: BEVACIZUMAB
     Indication: Cervix carcinoma
     Route: 065
     Dates: start: 20230922, end: 20230922
  2. AVASTIN [Suspect]
     Active Substance: BEVACIZUMAB
     Route: 065
     Dates: start: 20231013, end: 20231013
  3. AVASTIN [Suspect]
     Active Substance: BEVACIZUMAB
     Route: 065
     Dates: start: 20231129, end: 20231129
  4. CISPLATIN [Suspect]
     Active Substance: CISPLATIN
     Indication: Cervix carcinoma
     Route: 065
     Dates: start: 20231013, end: 20231013
  5. CISPLATIN [Suspect]
     Active Substance: CISPLATIN
     Route: 065
     Dates: start: 20231129, end: 20231129
  6. CISPLATIN [Suspect]
     Active Substance: CISPLATIN
     Route: 065
     Dates: start: 20230922, end: 20230922

REACTIONS (12)
  - Bladder catheterisation [Recovered/Resolved]
  - Stoma creation [Unknown]
  - Stoma care [Unknown]
  - Wound treatment [Unknown]
  - Therapeutic procedure [Recovered/Resolved]
  - Inappropriate schedule of product administration [Unknown]
  - Vaginectomy [Unknown]
  - Red blood cell transfusion [Recovered/Resolved]
  - Transfusion [Unknown]
  - Bladder catheterisation [Unknown]
  - Endoscopy upper gastrointestinal tract [Unknown]
  - Oxygen therapy [Recovered/Resolved]

NARRATIVE: CASE EVENT DATE: 20230923
